FAERS Safety Report 5261864-5 (Version None)
Quarter: 2007Q1

REPORT INFORMATION
  Report Type: 
  Country: None (occurrence: None)
  Receive Date: 20070310
  Receipt Date: 20070228
  Transmission Date: 20070707
  Serious: Yes (Other)
  Sender: FDA-Public Use
  Company Number: PHBS2007JP01617

PATIENT
  Age: 75 Year
  Sex: Female

DRUGS (4)
  1. LAMISIL [Suspect]
     Indication: NAIL TINEA
     Dosage: 125 MG/D
     Route: 048
     Dates: start: 20060630, end: 20070122
  2. KERLONG [Concomitant]
     Dosage: 10 MG/D
     Route: 048
  3. ASPIRIN [Concomitant]
     Dosage: 10 MG/D
     Route: 048
  4. AMLODIN [Concomitant]
     Dosage: 5 MG/D
     Route: 048

REACTIONS (2)
  - HYPERTENSION [None]
  - MALAISE [None]
